FAERS Safety Report 5290616-5 (Version None)
Quarter: 2007Q2

REPORT INFORMATION
  Report Type: 
  Country: None (occurrence: None)
  Receive Date: 20070405
  Receipt Date: 20070405
  Transmission Date: 20071010
  Serious: Yes (Hospitalization)
  Sender: FDA-Public Use
  Company Number: None

PATIENT
  Age: 76 Year
  Sex: Male
  Weight: 95.7 kg

DRUGS (1)
  1. ACYCLOVIR [Suspect]
     Indication: HERPES ZOSTER
     Dosage: 800 MG 5 TIMES PER DAY PO
     Route: 048
     Dates: start: 20070321, end: 20070324

REACTIONS (4)
  - ENCEPHALITIS [None]
  - HALLUCINATION, VISUAL [None]
  - MENTAL STATUS CHANGES [None]
  - OVERDOSE [None]
